FAERS Safety Report 7892495-6 (Version None)
Quarter: 2011Q4

REPORT INFORMATION
  Report Type: 
  Country: None (occurrence: None)
  Receive Date: 20111028
  Receipt Date: 20111019
  Transmission Date: 20120403
  Serious: Yes (Hospitalization)
  Sender: FDA-Public Use
  Company Number: AEGBR201100240

PATIENT
  Age: 33 Year
  Sex: Female

DRUGS (7)
  1. NORETHINDRONE [Suspect]
     Dosage: 5 MG; TID; PO
     Route: 048
     Dates: start: 20100922, end: 20100928
  2. RITUXIMAB (RITUXIMAB) [Suspect]
     Indication: PRODUCT USED FOR UNKNOWN INDICATION
     Dosage: 375 MG/M**2; BIW; IV
     Route: 042
     Dates: start: 20100917, end: 20100924
  3. DEXAMETHASONE [Concomitant]
  4. TRANEXAMIC ACID [Suspect]
     Indication: PRODUCT USED FOR UNKNOWN INDICATION
     Dosage: 1 DF; QID; PO
     Route: 048
  5. LANSOPRAZOLE [Suspect]
     Indication: GASTROOESOPHAGEAL REFLUX PROPHYLAXIS
     Dosage: 30 MG ;QD; PO
     Route: 048
     Dates: start: 20100907, end: 20100928
  6. IGIV (MANUFACTURER UNKNOWN) (IMMUNE GLOBULIN IB (HUMAN), CAPRYLATE/CHR [Suspect]
     Indication: IDIOPATHIC THROMBOCYTOPENIC PURPURA
     Dosage: 1000 MG/KG; QD; IV
     Route: 042
     Dates: start: 20100922, end: 20100923
  7. ROMIPLOSTIM (NO PREF. NAME) [Suspect]
     Indication: IDIOPATHIC THROMBOCYTOPENIC PURPURA
     Dosage: 1 MG/KG; 1X; SC
     Route: 058
     Dates: start: 20100920, end: 20100920

REACTIONS (9)
  - HAEMOGLOBIN DECREASED [None]
  - VAGINAL HAEMORRHAGE [None]
  - PURPURA [None]
  - RED BLOOD CELL COUNT DECREASED [None]
  - RASH ERYTHEMATOUS [None]
  - WHITE BLOOD CELL COUNT DECREASED [None]
  - RASH MACULO-PAPULAR [None]
  - MELAENA [None]
  - RECTAL HAEMORRHAGE [None]
